FAERS Safety Report 24052437 (Version 1)
Quarter: 2024Q3

REPORT INFORMATION
  Report Type: Spontaneous
  Country: US (occurrence: US)
  Receive Date: 20240704
  Receipt Date: 20240704
  Transmission Date: 20241016
  Serious: Yes (Other)
  Sender: BRISTOL MYERS SQUIBB
  Company Number: US-BRISTOL-MYERS SQUIBB COMPANY-2024-105162

PATIENT
  Age: 77 Year
  Sex: Male
  Weight: 95.07 kg

DRUGS (12)
  1. POMALYST [Suspect]
     Active Substance: POMALIDOMIDE
     Indication: Plasma cell myeloma
     Route: 048
     Dates: start: 20240415, end: 202406
  2. CALCIUM [Concomitant]
     Active Substance: CALCIUM
  3. MAGNESIUM [Concomitant]
     Active Substance: MAGNESIUM
  4. DARZALEX FASPRO [Concomitant]
     Active Substance: DARATUMUMAB\HYALURONIDASE-FIHJ
  5. VITAMIN C [Concomitant]
     Active Substance: ASCORBIC ACID
     Dosage: LIQUID
  6. LASIX [Concomitant]
     Active Substance: FUROSEMIDE
  7. POTASSIUM CHLORIDE [Concomitant]
     Active Substance: POTASSIUM CHLORIDE
     Dosage: ER
  8. ASPIRIN [Concomitant]
     Active Substance: ASPIRIN
     Dosage: LOW DOSE D/F
  9. ATORVASTATIN [Concomitant]
     Active Substance: ATORVASTATIN
  10. DEXAMETHASONE [Concomitant]
     Active Substance: DEXAMETHASONE
  11. METOPROLOL TARTRATE [Concomitant]
     Active Substance: METOPROLOL TARTRATE
  12. ONDANSETRON [Concomitant]
     Active Substance: ONDANSETRON

REACTIONS (3)
  - Dyspnoea [Recovered/Resolved]
  - Neuropathy peripheral [Recovered/Resolved]
  - Brain fog [Recovered/Resolved]

NARRATIVE: CASE EVENT DATE: 20240601
